FAERS Safety Report 10412653 (Version 1)
Quarter: 2014Q3

REPORT INFORMATION
  Report Type: Spontaneous
  Country: US (occurrence: None)
  Receive Date: 20140826
  Receipt Date: 20140826
  Transmission Date: 20150326
  Serious: Yes (Other)
  Sender: FDA-Public Use
  Company Number: None

PATIENT
  Age: 65 Year
  Sex: Male
  Weight: 89.36 kg

DRUGS (1)
  1. VICTOZA [Suspect]
     Active Substance: LIRAGLUTIDE
     Indication: DIABETES MELLITUS
     Route: 030

REACTIONS (6)
  - Oropharyngeal pain [None]
  - Fatigue [None]
  - Dizziness [None]
  - Nausea [None]
  - Gastric disorder [None]
  - Anaemia [None]

NARRATIVE: CASE EVENT DATE: 20140825
